FAERS Safety Report 6615182-0 (Version None)
Quarter: 2010Q1

REPORT INFORMATION
  Report Type: 
  Country: None (occurrence: None)
  Receive Date: 20100305
  Receipt Date: 20100226
  Transmission Date: 20100710
  Serious: Yes (Hospitalization)
  Sender: FDA-Public Use
  Company Number: PHHY2010DE10681

PATIENT
  Age: 16 Year
  Sex: Male

DRUGS (1)
  1. FEMARA [Suspect]
     Indication: GROWTH RETARDATION
     Dosage: UNK
     Dates: start: 20090101

REACTIONS (2)
  - GALLBLADDER OEDEMA [None]
  - PERICARDIAL EFFUSION [None]
